FAERS Safety Report 9262323 (Version 5)
Quarter: 2013Q4

REPORT INFORMATION
  Report Type: Spontaneous
  Country: IT (occurrence: None)
  Receive Date: 20130425
  Receipt Date: 20131007
  Transmission Date: 20140711
  Serious: Yes (Life-Threatening, Hospitalization)
  Sender: FDA-Public Use
  Company Number: SYM-2013-02932

PATIENT
  Age: 69 Year
  Sex: Male

DRUGS (7)
  1. 5 FU [Suspect]
     Indication: COLORECTAL CANCER METASTATIC
     Route: 040
     Dates: start: 20130129, end: 20130129
  2. AFLIBERCEPT [Suspect]
     Indication: COLORECTAL CANCER METASTATIC
     Route: 042
     Dates: start: 20130129, end: 20130129
  3. IRINOTECAN [Suspect]
     Indication: COLORECTAL CANCER METASTATIC
     Route: 042
     Dates: start: 20130129, end: 20130129
  4. LEUCOVORIN [Suspect]
     Indication: COLORECTAL CANCER METASTATIC
     Route: 042
     Dates: start: 20130129, end: 20130129
  5. CORTICOSTEROIDS (CORTICOSTEROIDS) [Concomitant]
  6. ATORVASTATIN (ATORVASTATIN)  (ATORVASTATIN) [Concomitant]
  7. CALCIUM CHANNEL BLOCKERS (CALCIUM CHANNEL BLOCKERS) [Concomitant]

REACTIONS (6)
  - Respiratory failure [None]
  - Haemoptysis [None]
  - Pulmonary embolism [None]
  - Bedridden [None]
  - Epistaxis [None]
  - Tracheal obstruction [None]
